FAERS Safety Report 7476533-0 (Version None)
Quarter: 2011Q2

REPORT INFORMATION
  Report Type: 
  Country: None (occurrence: None)
  Receive Date: 20110512
  Receipt Date: 20110503
  Transmission Date: 20111010
  Serious: Yes (Other)
  Sender: FDA-Public Use
  Company Number: CHPA2011US06276

PATIENT
  Age: 55 Year
  Sex: Female

DRUGS (1)
  1. MAALOX ADV MAXIMUM STRENGTH ANTACID/ANTIGAS [Suspect]
     Indication: ABDOMINAL DISCOMFORT
     Dosage: 4 TSP, BID
     Route: 048

REACTIONS (3)
  - OFF LABEL USE [None]
  - CONCOMITANT DISEASE AGGRAVATED [None]
  - BLOOD GLUCOSE FLUCTUATION [None]
